FAERS Safety Report 7315686-1 (Version None)
Quarter: 2011Q1

REPORT INFORMATION
  Report Type: 
  Country: None (occurrence: None)
  Receive Date: 20110225
  Receipt Date: 20110215
  Transmission Date: 20110831
  Serious: Yes (Hospitalization)
  Sender: FDA-Public Use
  Company Number: VE-JNJFOC-20110206278

PATIENT
  Sex: Female

DRUGS (6)
  1. TRAMADOL HYDROCHLORIDE AND ACETAMINOPHEN [Suspect]
     Indication: INTERVERTEBRAL DISC DEGENERATION
     Route: 048
  2. OMEGA VITAMIN [Concomitant]
  3. GINKGO BILOBA [Concomitant]
  4. VITAMINE E [Concomitant]
  5. OMEPRAZOLE [Concomitant]
  6. LEVOCARNITINE [Concomitant]

REACTIONS (6)
  - DYSPNOEA [None]
  - VISION BLURRED [None]
  - HYPERHIDROSIS [None]
  - MENIERE'S DISEASE [None]
  - PARAESTHESIA [None]
  - TACHYCARDIA [None]
